FAERS Safety Report 4613166-5 (Version None)
Quarter: 2005Q1

REPORT INFORMATION
  Report Type: 
  Country: None (occurrence: None)
  Receive Date: 20050316
  Receipt Date: 20050224
  Transmission Date: 20050727
  Serious: Yes (Other)
  Sender: FDA-Public Use
  Company Number: USA050291741

PATIENT
  Age: 72 Year
  Sex: Male
  Weight: 77 kg

DRUGS (7)
  1. XIGRIS [Suspect]
     Indication: SEPSIS
     Dates: start: 20050224, end: 20050224
  2. VANCOMYCIN [Concomitant]
  3. PRIMAXIN [Concomitant]
  4. ZOSYN [Concomitant]
  5. LEVOFOXACIN [Concomitant]
  6. PRESSORS [Concomitant]
  7. PHENYLEPHRINE [Concomitant]

REACTIONS (1)
  - MEDICATION ERROR [None]
